FAERS Safety Report 11929423 (Version 1)
Quarter: 2016Q1

REPORT INFORMATION
  Report Type: Spontaneous
  Country: US (occurrence: None)
  Receive Date: 20160119
  Receipt Date: 20160119
  Transmission Date: 20160526
  Serious: Yes (Other)
  Sender: FDA-Public Use
  Company Number: None

PATIENT
  Age: 28 Year
  Sex: Male
  Weight: 83.92 kg

DRUGS (6)
  1. THRIVE THRIVE PREMIUM LIFESTYLE CAPSULE LEVEL BRANDS LLC [Suspect]
     Active Substance: DIETARY SUPPLEMENT
     Indication: NUTRITIONAL SUPPLEMENTATION
     Dosage: 2 PILLS  ONCE DAILY TAKEN BY MOUTH
     Dates: start: 20151207, end: 20151209
  2. THRIVE THRIVE DFT PATCH LE-VEL BRANDS LLC [Suspect]
     Active Substance: DIETARY SUPPLEMENT
     Indication: VITAMIN SUPPLEMENTATION
     Route: 048
     Dates: start: 20151207, end: 20151209
  3. THRIVE CAPSULES [Concomitant]
  4. THRIVE THRIVE DFT PATCH LE-VEL BRANDS LLC [Suspect]
     Active Substance: DIETARY SUPPLEMENT
     Indication: MINERAL SUPPLEMENTATION
     Route: 048
     Dates: start: 20151207, end: 20151209
  5. THRIVE THRIVE PREMIUM LIFESTYLE CAPSULE LEVEL BRANDS LLC [Suspect]
     Active Substance: DIETARY SUPPLEMENT
     Indication: ASTHENIA
     Dosage: 2 PILLS  ONCE DAILY TAKEN BY MOUTH
     Dates: start: 20151207, end: 20151209
  6. THRIVE PREMIUM NUTRITION SHAKE [Concomitant]

REACTIONS (7)
  - Hypoaesthesia [None]
  - Pruritus generalised [None]
  - Coordination abnormal [None]
  - Nausea [None]
  - Palpitations [None]
  - Feeling abnormal [None]
  - Fatigue [None]

NARRATIVE: CASE EVENT DATE: 20151209
